FAERS Safety Report 6880542-X (Version None)
Quarter: 2010Q3

REPORT INFORMATION
  Report Type: 
  Country: None (occurrence: None)
  Receive Date: 20100728
  Receipt Date: 20100715
  Transmission Date: 20110219
  Serious: Yes (Other)
  Sender: FDA-Public Use
  Company Number: FR-GENZYME-POMP-1001014

PATIENT
  Sex: Male
  Weight: 12 kg

DRUGS (3)
  1. MYOZYME [Suspect]
     Indication: GLYCOGEN STORAGE DISEASE TYPE II
     Dosage: 30 MG/KG, Q2W
     Route: 042
     Dates: start: 20070816
  2. POLARAMINE [Concomitant]
     Indication: PREMEDICATION
     Dosage: 0.5 OTHER, UNK
     Dates: start: 20100708
  3. SOLU-MEDROL [Concomitant]
     Indication: PREMEDICATION
     Dosage: 5 MG, UNK
     Route: 065
     Dates: start: 20100708

REACTIONS (3)
  - ELECTROCARDIOGRAM QT PROLONGED [None]
  - RESPIRATORY FAILURE [None]
  - THERAPEUTIC RESPONSE DECREASED [None]
